FAERS Safety Report 15489562 (Version 1)
Quarter: 2018Q4

REPORT INFORMATION
  Report Type: Spontaneous
  Country: US (occurrence: US)
  Receive Date: 20181011
  Receipt Date: 20181011
  Transmission Date: 20190205
  Serious: No
  Sender: FDA-Public Use
  Company Number: US-PERRIGO-18US008282

PATIENT

DRUGS (1)
  1. NICOTINE POLACRILEX [Suspect]
     Active Substance: NICOTINE
     Indication: PRODUCT USED FOR UNKNOWN INDICATION
     Dosage: UNKNOWN, UNKNOWN
     Route: 002
     Dates: start: 201806, end: 201808

REACTIONS (3)
  - Tooth discolouration [Unknown]
  - Tongue discolouration [Unknown]
  - Oral mucosal discolouration [Unknown]

NARRATIVE: CASE EVENT DATE: 201806
